FAERS Safety Report 20310108 (Version 1)
Quarter: 2022Q1

REPORT INFORMATION
  Report Type: Spontaneous
  Country: US (occurrence: US)
  Receive Date: 20220107
  Receipt Date: 20220107
  Transmission Date: 20220423
  Serious: No
  Sender: FDA-Public Use
  Company Number: US-KVK-TECH, INC-20210500064

PATIENT
  Age: 87 Year
  Sex: Male

DRUGS (4)
  1. OXYBUTYNIN CHLORIDE [Suspect]
     Active Substance: OXYBUTYNIN CHLORIDE
     Indication: Product used for unknown indication
     Dosage: UNKNOWN DOSE
  2. XTANDI [Suspect]
     Active Substance: ENZALUTAMIDE
     Indication: Prostate cancer
     Dosage: 160 MILLIGRAM, QD (ONCE DAILY)
     Route: 048
     Dates: start: 20201124
  3. XTANDI [Suspect]
     Active Substance: ENZALUTAMIDE
     Dosage: 160 MILLIGRAM, QD (ONCE DAILY)
     Route: 048
     Dates: start: 20201221
  4. XTANDI [Suspect]
     Active Substance: ENZALUTAMIDE
     Dosage: 160 MILLIGRAM, QD (ONCE DAILY)
     Route: 048

REACTIONS (10)
  - Ageusia [Unknown]
  - Condition aggravated [Unknown]
  - Night sweats [Unknown]
  - Hot flush [Unknown]
  - Fatigue [Unknown]
  - Anosmia [Unknown]
  - Condition aggravated [Unknown]
  - Nasal dryness [Unknown]
  - Condition aggravated [Unknown]
  - Dry mouth [Unknown]

NARRATIVE: CASE EVENT DATE: 20210501
